FAERS Safety Report 25282246 (Version 1)
Quarter: 2025Q2

REPORT INFORMATION
  Report Type: Report from Study
  Country: US (occurrence: US)
  Receive Date: 20250508
  Receipt Date: 20250508
  Transmission Date: 20250717
  Serious: No
  Sender: ACADIA PHARMACEUTICALS
  Company Number: US-ACADIA PHARMACEUTICALS INC.-ACA-2025-PIM-005269

PATIENT
  Age: 81 Year
  Sex: Male

DRUGS (18)
  1. NUPLAZID [Suspect]
     Active Substance: PIMAVANSERIN TARTRATE
     Indication: Hallucination, visual
     Dosage: 34 MILLIGRAM, QD
     Route: 048
     Dates: start: 20250227, end: 20250418
  2. SINEMET [Concomitant]
     Active Substance: CARBIDOPA\LEVODOPA
  3. SINEMET CR [Concomitant]
     Active Substance: CARBIDOPA\LEVODOPA
  4. GLIPIZIDE [Concomitant]
     Active Substance: GLIPIZIDE
  5. MEMANTINE [Concomitant]
     Active Substance: MEMANTINE
  6. METFORMIN HYDROCHLORIDE [Concomitant]
     Active Substance: METFORMIN HYDROCHLORIDE
  7. METOPROLOL [Concomitant]
     Active Substance: METOPROLOL
  8. SIMVASTATIN [Concomitant]
     Active Substance: SIMVASTATIN
  9. TRIHEXYPHEN [Concomitant]
  10. XARELTO [Concomitant]
     Active Substance: RIVAROXABAN
  11. MYRBETRIQ [Concomitant]
     Active Substance: MIRABEGRON
  12. OMEGA-3 FATTY ACIDS [Concomitant]
     Active Substance: OMEGA-3 FATTY ACIDS
  13. VITAMIN B12 [Concomitant]
     Active Substance: CYANOCOBALAMIN
  14. COENZYME Q10 [Concomitant]
     Active Substance: DIETARY SUPPLEMENT\UBIDECARENONE
  15. OSTEO-BI-FLEX [Concomitant]
  16. MINERALS\VITAMINS [Concomitant]
     Active Substance: MINERALS\VITAMINS
  17. MESTRANOL\NORETHYNODREL [Concomitant]
     Active Substance: MESTRANOL\NORETHYNODREL
  18. MELATONIN [MELATONIN;PYRIDOXINE HYDROCHLORIDE] [Concomitant]

REACTIONS (1)
  - Drug ineffective [Unknown]

NARRATIVE: CASE EVENT DATE: 20250418
